FAERS Safety Report 18557452 (Version 3)
Quarter: 2021Q1

REPORT INFORMATION
  Report Type: Spontaneous
  Country: JP (occurrence: JP)
  Receive Date: 20201129
  Receipt Date: 20210304
  Transmission Date: 20210419
  Serious: Yes (Hospitalization, Other)
  Sender: FDA-Public Use
  Company Number: JP-TAKEDA-2020TJP025761

PATIENT
  Age: 73 Year
  Sex: Male

DRUGS (13)
  1. DAIKENCHUTO [Concomitant]
     Active Substance: HERBALS
     Indication: DIARRHOEA
     Dosage: 5 GRAM, TID
     Route: 065
     Dates: start: 20191224, end: 20200210
  2. THEO?DUR [Concomitant]
     Active Substance: THEOPHYLLINE ANHYDROUS
     Indication: LUNG DISORDER
     Dosage: 100 MILLIGRAM, BID
     Route: 065
     Dates: start: 20200124, end: 20200224
  3. PREDNISOLONE. [Concomitant]
     Active Substance: PREDNISOLONE
     Dosage: 60 MILLIGRAM
     Route: 041
     Dates: start: 20190919
  4. RABEPRAZOLE SODIUM. [Concomitant]
     Active Substance: RABEPRAZOLE SODIUM
     Indication: DECREASED APPETITE
     Dosage: 10 MILLIGRAM, QD
     Route: 065
     Dates: start: 20190910, end: 202010
  5. PREDNISOLONE. [Concomitant]
     Active Substance: PREDNISOLONE
     Dosage: 40 MILLIGRAM
     Route: 041
     Dates: start: 20190909
  6. DENOSINE [GANCICLOVIR] [Concomitant]
     Active Substance: GANCICLOVIR
     Indication: CYTOMEGALOVIRUS INFECTION
     Dosage: 250 MILLIGRAM, QD
     Route: 041
     Dates: start: 20191004, end: 20191210
  7. DAIKENCHUTO [Concomitant]
     Active Substance: HERBALS
     Indication: ABDOMINAL PAIN
  8. ENTYVIO [Suspect]
     Active Substance: VEDOLIZUMAB
     Indication: COLITIS ULCERATIVE
     Dosage: 300 MILLIGRAM
     Route: 041
     Dates: start: 20191204, end: 20200714
  9. PENTASA [Concomitant]
     Active Substance: MESALAMINE
     Indication: COLITIS ULCERATIVE
     Dosage: 2000 MILLIGRAM, BID
     Route: 065
     Dates: start: 20190821, end: 202010
  10. NEOPHYLLIN [AMINOPHYLLINE] [Concomitant]
     Indication: LUNG DISORDER
     Dosage: 250 MILLIGRAM, QD
     Route: 041
     Dates: start: 20200122, end: 20200131
  11. METHYCOBAL [Concomitant]
     Active Substance: METHYLCOBALAMIN
     Indication: NEUROPATHY PERIPHERAL
     Dosage: 500 MICROGRAM, TID
     Route: 065
     Dates: start: 20200124, end: 20200323
  12. PREDNISOLONE. [Concomitant]
     Active Substance: PREDNISOLONE
     Dosage: UNK
     Route: 041
  13. ZINC. [Concomitant]
     Active Substance: ZINC
     Indication: TASTE DISORDER
     Dosage: 25 MILLIGRAM, BID
     Route: 065
     Dates: start: 20200107, end: 202010

REACTIONS (5)
  - Colitis ulcerative [Recovering/Resolving]
  - Chronic obstructive pulmonary disease [Not Recovered/Not Resolved]
  - Cytomegalovirus infection [Recovering/Resolving]
  - Pneumonia [Recovered/Resolved]
  - Decreased appetite [Recovered/Resolved]

NARRATIVE: CASE EVENT DATE: 20200120
